FAERS Safety Report 7093470-4 (Version None)
Quarter: 2010Q4

REPORT INFORMATION
  Report Type: 
  Country: None (occurrence: None)
  Receive Date: 20101029
  Receipt Date: 20101020
  Transmission Date: 20110411
  Serious: Yes (Life-Threatening, Hospitalization)
  Sender: FDA-Public Use
  Company Number: 2010PV000075

PATIENT
  Age: 10 Year
  Sex: Male

DRUGS (9)
  1. DEPOCYT [Suspect]
     Indication: ACUTE LYMPHOCYTIC LEUKAEMIA RECURRENT
     Dosage: 35 MG; ; INTH
     Route: 037
  2. DEXAMETHASONE [Concomitant]
  3. VINCRISTINE [Concomitant]
  4. METHOTREXATE [Concomitant]
  5. PEG-ASPARAGINASE [Concomitant]
  6. CYTARABINE [Concomitant]
  7. IFOSFAMIDE [Concomitant]
  8. LANVIS [Concomitant]
  9. PRECORTALON AQUOSUM [Concomitant]

REACTIONS (1)
  - INTRACRANIAL PRESSURE INCREASED [None]
